FAERS Safety Report 22249067 (Version 7)
Quarter: 2024Q3

REPORT INFORMATION
  Report Type: Report from Study
  Country: CA (occurrence: CA)
  Receive Date: 20230425
  Receipt Date: 20240702
  Transmission Date: 20241016
  Serious: Yes (Hospitalization, Other)
  Sender: JOHNSON AND JOHNSON
  Company Number: CA-JNJFOC-20230450837

PATIENT
  Age: 40 Year
  Sex: Female
  Weight: 110 kg

DRUGS (4)
  1. REMICADE [Suspect]
     Active Substance: INFLIXIMAB
     Indication: Crohn^s disease
     Dosage: LAST 600 MG DOSE WAS 21/APR/2023?EXPIRY DATE: NOV-2025
     Route: 041
     Dates: start: 20141030
  2. REMICADE [Suspect]
     Active Substance: INFLIXIMAB
     Dosage: STAT DOSE. DOCTOR HAD ORDERED 600 MG IV WEEKS 0 4 AND 10 POST A DRUG HOLIDAY.
     Route: 041
     Dates: start: 20230627
  3. REMICADE [Suspect]
     Active Substance: INFLIXIMAB
     Dosage: EXPIRY DATE: NO-2026
     Route: 041
     Dates: start: 20141030
  4. METFORMIN [Suspect]
     Active Substance: METFORMIN HYDROCHLORIDE
     Indication: Type 2 diabetes mellitus
     Dosage: BID
     Route: 065
     Dates: end: 20240525

REACTIONS (10)
  - Pancreatic neoplasm [Recovering/Resolving]
  - Pulmonary embolism [Unknown]
  - Type 2 diabetes mellitus [Unknown]
  - Limb injury [Unknown]
  - Foot fracture [Unknown]
  - Blood iron decreased [Unknown]
  - Stress [Unknown]
  - Mood altered [Recovered/Resolved]
  - Alopecia [Unknown]
  - Nausea [Unknown]

NARRATIVE: CASE EVENT DATE: 20230330
